FAERS Safety Report 6113093-0 (Version None)
Quarter: 2009Q1

REPORT INFORMATION
  Report Type: 
  Country: None (occurrence: None)
  Receive Date: 20090312
  Receipt Date: 20090302
  Transmission Date: 20090719
  Serious: Yes (Other)
  Sender: FDA-Public Use
  Company Number: GB-BAXTER-2009BH003808

PATIENT
  Sex: Female

DRUGS (2)
  1. HEPARIN SODIUM 1,000 UNITS AND SODIUM CHLORIDE 0.9% [Suspect]
     Indication: THROMBOSIS PROPHYLAXIS
     Route: 042
     Dates: start: 19900101, end: 19900101
  2. WARFARIN [Suspect]
     Indication: THROMBOSIS PROPHYLAXIS
     Route: 065

REACTIONS (2)
  - DRUG EXPOSURE DURING PREGNANCY [None]
  - POSTPARTUM HAEMORRHAGE [None]
